FAERS Safety Report 16882419 (Version 2)
Quarter: 2019Q4

REPORT INFORMATION
  Report Type: Spontaneous
  Country: US (occurrence: US)
  Receive Date: 20191003
  Receipt Date: 20191120
  Transmission Date: 20200122
  Serious: Yes (Hospitalization, Other)
  Sender: FDA-Public Use
  Company Number: US-JAZZ-2019-US-008347

PATIENT
  Age: 24 Year
  Sex: Female
  Weight: 52.27 kg

DRUGS (1)
  1. XYREM [Suspect]
     Active Substance: SODIUM OXYBATE
     Indication: PRODUCT USED FOR UNKNOWN INDICATION
     Dosage: TAKES 1 DOSE AT BEDTIME + IN THE MIDDLE THE NIGHT
     Route: 048

REACTIONS (8)
  - Salivary hypersecretion [Unknown]
  - Intentional overdose [Unknown]
  - Nausea [Recovered/Resolved]
  - Loss of consciousness [Unknown]
  - Mental status changes [Unknown]
  - Suicide attempt [Unknown]
  - Depressed level of consciousness [Recovered/Resolved]
  - Tremor [Unknown]
